FAERS Safety Report 12606071 (Version 1)
Quarter: 2016Q3

REPORT INFORMATION
  Report Type: Spontaneous
  Country: US (occurrence: None)
  Receive Date: 20160728
  Receipt Date: 20160728
  Transmission Date: 20161109
  Serious: Yes (Other)
  Sender: FDA-Public Use
  Company Number: None

PATIENT
  Age: 49 Year
  Sex: Male
  Weight: 83.92 kg

DRUGS (9)
  1. FUROSEMIDE. [Concomitant]
     Active Substance: FUROSEMIDE
  2. ENTRESTO [Suspect]
     Active Substance: SACUBITRIL\VALSARTAN
     Indication: CARDIAC FAILURE
     Dosage: 1 TABLET(S) TWICE A DAY TAKEN BY MOUTH
     Route: 048
     Dates: start: 20151118, end: 20160711
  3. LISINOPRIL. [Concomitant]
     Active Substance: LISINOPRIL
  4. NITROSTAT [Concomitant]
     Active Substance: NITROGLYCERIN
  5. ASPIRIN. [Concomitant]
     Active Substance: ASPIRIN
  6. CARVEDILOL. [Concomitant]
     Active Substance: CARVEDILOL
  7. CRESTOR [Concomitant]
     Active Substance: ROSUVASTATIN CALCIUM
  8. BRILINTA [Concomitant]
     Active Substance: TICAGRELOR
  9. EPERENONE [Concomitant]

REACTIONS (7)
  - Ejection fraction decreased [None]
  - Fatigue [None]
  - Dyspnoea [None]
  - Left atrial enlargement [None]
  - Dysphagia [None]
  - Somnolence [None]
  - Pharyngeal oedema [None]

NARRATIVE: CASE EVENT DATE: 20160701
